FAERS Safety Report 4588870-8 (Version None)
Quarter: 2005Q1

REPORT INFORMATION
  Report Type: 
  Country: None (occurrence: None)
  Receive Date: 20050222
  Receipt Date: 20050214
  Transmission Date: 20050727
  Serious: Yes (Other)
  Sender: FDA-Public Use
  Company Number: NL-GLAXOSMITHKLINE-B0372231A

PATIENT
  Sex: Female

DRUGS (1)
  1. SUMATRIPTAN SUCCINATE [Suspect]
     Route: 065
     Dates: start: 19950101

REACTIONS (1)
  - INFERTILITY [None]
